FAERS Safety Report 8111952-0 (Version None)
Quarter: 2012Q1

REPORT INFORMATION
  Report Type: 
  Country: None (occurrence: None)
  Receive Date: 20120203
  Receipt Date: 20110805
  Transmission Date: 20120608
  Serious: No
  Sender: FDA-Public Use
  Company Number: US-GLAXOSMITHKLINE-A0940426A

PATIENT
  Age: 2 Year

DRUGS (1)
  1. ARIXTRA [Suspect]
     Indication: ILL-DEFINED DISORDER
     Dosage: 7.5MG SINGLE DOSE
     Route: 048

REACTIONS (2)
  - ACCIDENTAL DRUG INTAKE BY CHILD [None]
  - INCORRECT ROUTE OF DRUG ADMINISTRATION [None]
